FAERS Safety Report 9903959 (Version 2)
Quarter: 2014Q2

REPORT INFORMATION
  Report Type: Spontaneous
  Country: US (occurrence: US)
  Receive Date: 20140218
  Receipt Date: 20140414
  Transmission Date: 20141212
  Serious: No
  Sender: FDA-Public Use
  Company Number: US-BIOGENIDEC-2014BI011799

PATIENT
  Age: 52 Year
  Sex: Female
  Weight: 115 kg

DRUGS (9)
  1. TECFIDERA [Suspect]
     Indication: MULTIPLE SCLEROSIS
     Route: 048
     Dates: start: 20140128
  2. TECFIDERA [Suspect]
     Indication: MULTIPLE SCLEROSIS
     Route: 048
     Dates: start: 201401
  3. SPIRIVA [Concomitant]
  4. VITAMIN D3 [Concomitant]
  5. METAMUCIL [Concomitant]
  6. IBUPROFEN [Concomitant]
  7. FISH OIL [Concomitant]
  8. TYLENOL [Concomitant]
  9. HYDROCODONE [Concomitant]

REACTIONS (5)
  - Pleurisy [Unknown]
  - Nasopharyngitis [Unknown]
  - Bronchitis [Unknown]
  - Influenza [Unknown]
  - Dyspepsia [Unknown]
